FAERS Safety Report 8423700-5 (Version None)
Quarter: 2012Q2

REPORT INFORMATION
  Report Type: 
  Country: None (occurrence: None)
  Receive Date: 20120608
  Receipt Date: 20120110
  Transmission Date: 20120825
  Serious: No
  Sender: FDA-Public Use
  Company Number: US-ASTRAZENECA-2012SE02135

PATIENT
  Age: 83 Year
  Sex: Male

DRUGS (2)
  1. ATACAND [Suspect]
     Route: 048
  2. NEXIUM [Suspect]
     Route: 048

REACTIONS (4)
  - PROTEIN TOTAL DECREASED [None]
  - DEMENTIA ALZHEIMER'S TYPE [None]
  - BLOOD PRESSURE DECREASED [None]
  - HEARING IMPAIRED [None]
